FAERS Safety Report 19669088 (Version 1)
Quarter: 2021Q3

REPORT INFORMATION
  Report Type: Spontaneous
  Country: US (occurrence: US)
  Receive Date: 20210806
  Receipt Date: 20210806
  Transmission Date: 20211014
  Serious: Yes (Other)
  Sender: FDA-Public Use
  Company Number: US-ACCORD-136294

PATIENT
  Age: 49 Year
  Sex: Female
  Weight: 127.01 kg

DRUGS (27)
  1. ELIQUIS [Concomitant]
     Active Substance: APIXABAN
     Dates: start: 2006
  2. FENOFIBRATE. [Concomitant]
     Active Substance: FENOFIBRATE
     Dates: start: 2006
  3. HUMALOG [Concomitant]
     Active Substance: INSULIN LISPRO
     Dates: start: 2006
  4. IBUPROFEN. [Concomitant]
     Active Substance: IBUPROFEN
     Dates: start: 2006
  5. NORTRIPTYLINE [Concomitant]
     Active Substance: NORTRIPTYLINE
     Dates: start: 2006
  6. ADVAIR HFA [Concomitant]
     Active Substance: FLUTICASONE PROPIONATE\SALMETEROL XINAFOATE
     Dates: start: 2006
  7. VASCEPA [Concomitant]
     Active Substance: ICOSAPENT ETHYL
     Dates: start: 2006
  8. BUPROPION/BUPROPION HYDROCHLORIDE [Concomitant]
     Active Substance: BUPROPION HYDROCHLORIDE
     Dates: start: 2006
  9. FLUCONAZOLE. [Concomitant]
     Active Substance: FLUCONAZOLE
     Dates: start: 2006
  10. FUROSEMIDE. [Concomitant]
     Active Substance: FUROSEMIDE
     Dates: start: 2006
  11. ECONAZOLE. [Concomitant]
     Active Substance: ECONAZOLE NITRATE
     Dates: start: 2006
  12. LISINOPRIL. [Concomitant]
     Active Substance: LISINOPRIL
     Dates: start: 2006
  13. MACROGOL [Concomitant]
     Active Substance: POLYETHYLENE GLYCOLS
     Dates: start: 2006
  14. PROAIR HFA [Concomitant]
     Active Substance: ALBUTEROL SULFATE
     Dates: start: 2006
  15. VICTOZA [Concomitant]
     Active Substance: LIRAGLUTIDE
     Dates: start: 2006
  16. GABAPENTIN. [Concomitant]
     Active Substance: GABAPENTIN
     Dates: start: 2006
  17. LEVOTHYROXINE. [Concomitant]
     Active Substance: LEVOTHYROXINE
     Dates: start: 2006
  18. MECLIZINE [Concomitant]
     Active Substance: MECLIZINE HYDROCHLORIDE
     Dates: start: 2006
  19. HYDROCODONE [Concomitant]
     Active Substance: HYDROCODONE
     Dates: start: 2006
  20. DOCETAXEL ACCORD [Suspect]
     Active Substance: DOCETAXEL
     Indication: BREAST CANCER
     Dosage: 150?180 MG?NUMBER OF CYCLES: 04
     Dates: start: 20130103, end: 20130308
  21. CYTOXAN [Suspect]
     Active Substance: CYCLOPHOSPHAMIDE
     Indication: BREAST CANCER
     Dosage: NUMBER OF CYCLES: 04
     Dates: start: 20130103, end: 20130308
  22. ATORVASTATIN [Concomitant]
     Active Substance: ATORVASTATIN
     Dates: start: 2006
  23. DOCQLACE [Concomitant]
     Active Substance: DOCUSATE SODIUM
     Dates: start: 2006
  24. METHOCARBAMOL. [Concomitant]
     Active Substance: METHOCARBAMOL
     Dates: start: 2006
  25. NOVOLIN NOS [Concomitant]
     Active Substance: INSULIN HUMAN
     Dates: start: 2006
  26. ANASTROZOLE. [Concomitant]
     Active Substance: ANASTROZOLE
     Dates: start: 2015
  27. POTASSIUM [Concomitant]
     Active Substance: POTASSIUM
     Dates: start: 2006

REACTIONS (1)
  - Alopecia [Not Recovered/Not Resolved]

NARRATIVE: CASE EVENT DATE: 201301
